FAERS Safety Report 7103391-6 (Version None)
Quarter: 2010Q4

REPORT INFORMATION
  Report Type: 
  Country: None (occurrence: None)
  Receive Date: 20101115
  Receipt Date: 20101104
  Transmission Date: 20110411
  Serious: Yes (Hospitalization)
  Sender: FDA-Public Use
  Company Number: PHHY2010JP27518

PATIENT
  Sex: Female

DRUGS (8)
  1. ZOMETA [Suspect]
     Indication: METASTASES TO BONE
     Dosage: 4 MG
     Route: 041
     Dates: start: 20100428, end: 20100428
  2. TAXOL [Suspect]
     Indication: BREAST CANCER
     Route: 041
  3. GLYBURIDE [Concomitant]
     Dosage: 1.25 MG
     Route: 048
  4. NU-LOTAN [Concomitant]
     Dosage: 50 MG
     Route: 048
  5. DECADRON [Concomitant]
     Route: 042
  6. GRANISETRON HCL [Concomitant]
     Route: 042
  7. RESTAMIN [Concomitant]
     Dosage: 5 DF
     Route: 048
  8. ZANTAC [Concomitant]

REACTIONS (7)
  - BLOOD PRESSURE DECREASED [None]
  - DEPRESSED LEVEL OF CONSCIOUSNESS [None]
  - FEELING HOT [None]
  - HYPERHIDROSIS [None]
  - HYPOTENSION [None]
  - INFUSION RELATED REACTION [None]
  - OXYGEN SATURATION DECREASED [None]
